FAERS Safety Report 10219850 (Version 1)
Quarter: 2014Q2

REPORT INFORMATION
  Report Type: Spontaneous
  Country: US (occurrence: US)
  Receive Date: 20140605
  Receipt Date: 20140605
  Transmission Date: 20141212
  Serious: Yes (Other)
  Sender: FDA-Public Use
  Company Number: US-DSJP-DSU-2014-110330

PATIENT
  Sex: 0

DRUGS (1)
  1. WELCHOL [Suspect]
     Indication: AUTOIMMUNE DISORDER
     Dosage: 3750 MG, QD
     Route: 048
     Dates: start: 2003

REACTIONS (2)
  - Back injury [Unknown]
  - Off label use [Not Recovered/Not Resolved]
